FAERS Safety Report 16607525 (Version 2)
Quarter: 2019Q3

REPORT INFORMATION
  Report Type: Spontaneous
  Country: JP (occurrence: JP)
  Receive Date: 20190722
  Receipt Date: 20190913
  Transmission Date: 20191004
  Serious: Yes (Hospitalization)
  Sender: FDA-Public Use
  Company Number: JP-TEVA-2019-JP-004340J

PATIENT
  Age: 71 Year
  Sex: Female

DRUGS (11)
  1. TAPIZOL CAPSULE 30 [Suspect]
     Active Substance: LANSOPRAZOLE
     Dosage: 30 MILLIGRAM DAILY;
     Route: 048
     Dates: start: 20190604
  2. MUCODYNE [Suspect]
     Active Substance: CARBOCYSTEINE
     Dosage: 1500 MILLIGRAM DAILY;
     Route: 048
     Dates: start: 20190614
  3. FLUVASTATIN [Concomitant]
     Active Substance: FLUVASTATIN SODIUM
     Route: 065
  4. TOCOPHEROL NICOTINATE [Concomitant]
     Active Substance: TOCOPHERYL NICOTINATE, D-.ALPHA.
     Route: 065
  5. TAPIZOL CAPSULE 30 [Suspect]
     Active Substance: LANSOPRAZOLE
     Route: 048
     Dates: start: 20181002
  6. GRACEVIT [Suspect]
     Active Substance: SITAFLOXACIN
     Dosage: 100 MILLIGRAM DAILY;
     Route: 048
     Dates: start: 20190614
  7. MAGMITT [Concomitant]
     Active Substance: MAGNESIUM OXIDE
     Route: 065
  8. CETIRIZINE HYDROCHLORIDE. [Concomitant]
     Active Substance: CETIRIZINE HYDROCHLORIDE
     Route: 065
  9. RINDERON [Concomitant]
     Route: 065
  10. TAPIZOL CAPSULE 30 [Suspect]
     Active Substance: LANSOPRAZOLE
     Indication: PRODUCT USED FOR UNKNOWN INDICATION
     Route: 048
     Dates: start: 20180713
  11. TAPIZOL CAPSULE 30 [Suspect]
     Active Substance: LANSOPRAZOLE
     Route: 048
     Dates: start: 20180731

REACTIONS (1)
  - Drug eruption [Not Recovered/Not Resolved]

NARRATIVE: CASE EVENT DATE: 201906
